FAERS Safety Report 16875612 (Version 1)
Quarter: 2019Q4

REPORT INFORMATION
  Report Type: Spontaneous
  Country: FR (occurrence: FR)
  Receive Date: 20191002
  Receipt Date: 20191002
  Transmission Date: 20200122
  Serious: Yes (Other)
  Sender: FDA-Public Use
  Company Number: FR-ROCHE-2374594

PATIENT
  Age: 67 Year
  Sex: Female

DRUGS (1)
  1. XOLAIR [Suspect]
     Active Substance: OMALIZUMAB
     Indication: PRODUCT USED FOR UNKNOWN INDICATION
     Dosage: 450 MG, EVERY 15 DAYS
     Route: 065
     Dates: start: 2017

REACTIONS (6)
  - Hot flush [Unknown]
  - Arthralgia [Unknown]
  - Alopecia [Unknown]
  - Feeling abnormal [Recovering/Resolving]
  - Vertigo [Unknown]
  - Petit mal epilepsy [Unknown]
